FAERS Safety Report 24945133 (Version 1)
Quarter: 2025Q1

REPORT INFORMATION
  Report Type: Spontaneous
  Country: US (occurrence: US)
  Receive Date: 20250208
  Receipt Date: 20250208
  Transmission Date: 20250408
  Serious: No
  Sender: SANOFI AVENTIS
  Company Number: US-SA-2025SA036732

PATIENT
  Age: 81 Year
  Sex: Female

DRUGS (4)
  1. DUPIXENT [Suspect]
     Active Substance: DUPILUMAB
     Indication: Neurodermatitis
     Dosage: 300 MG, QOW
     Route: 058
  2. PREDNISOLONE [Concomitant]
     Active Substance: PREDNISOLONE
  3. METOPROLOL [Concomitant]
     Active Substance: METOPROLOL
  4. BRIMONIDINE [Concomitant]
     Active Substance: BRIMONIDINE TARTRATE

REACTIONS (3)
  - Dry skin [Unknown]
  - Skin exfoliation [Unknown]
  - COVID-19 [Unknown]

NARRATIVE: CASE EVENT DATE: 20250101
